FAERS Safety Report 5909502-X (Version None)
Quarter: 2008Q4

REPORT INFORMATION
  Report Type: 
  Country: None (occurrence: None)
  Receive Date: 20081002
  Receipt Date: 20080922
  Transmission Date: 20090506
  Serious: Yes (Hospitalization)
  Sender: FDA-Public Use
  Company Number: 08P-020-0476803-00

PATIENT
  Sex: Female

DRUGS (7)
  1. SYNAGIS [Suspect]
     Indication: DRUG USE FOR UNKNOWN INDICATION
     Dosage: INTRAMUSCULAR
     Route: 030
     Dates: start: 20080606, end: 20080606
  2. SYNAGIS [Suspect]
     Indication: DRUG USE FOR UNKNOWN INDICATION
     Dosage: INTRAMUSCULAR
     Route: 030
     Dates: start: 20080707, end: 20080707
  3. SYNAGIS [Suspect]
     Indication: DRUG USE FOR UNKNOWN INDICATION
     Dosage: INTRAMUSCULAR
     Route: 030
     Dates: start: 20080806, end: 20080806
  4. FUROSEMIDE [Concomitant]
  5. AMIODARONE [Concomitant]
  6. POTASSIUM (SYRUP) [Concomitant]
  7. SODIUM CHLORIDE (SOLUTION) [Concomitant]

REACTIONS (2)
  - INCREASED BRONCHIAL SECRETION [None]
  - PYREXIA [None]
